FAERS Safety Report 10383664 (Version 1)
Quarter: 2014Q3

REPORT INFORMATION
  Report Type: Spontaneous
  Country: US (occurrence: None)
  Receive Date: 20140811
  Receipt Date: 20140811
  Transmission Date: 20150326
  Serious: Yes (Other)
  Sender: FDA-Public Use
  Company Number: US-ALKEM-000674

PATIENT
  Age: 68 Year
  Sex: Female
  Weight: 57.73 kg

DRUGS (1)
  1. GABAPENTIN. [Suspect]
     Active Substance: GABAPENTIN
     Indication: NEURALGIA
     Dosage: 1.0/ DAYS

REACTIONS (5)
  - Somnolence [None]
  - Coordination abnormal [None]
  - Fatigue [None]
  - Visual impairment [None]
  - Dyskinesia [None]
